FAERS Safety Report 25424065 (Version 1)
Quarter: 2025Q2

REPORT INFORMATION
  Report Type: Spontaneous
  Country: US (occurrence: None)
  Receive Date: 20250610
  Receipt Date: 20250610
  Transmission Date: 20250717
  Serious: No
  Sender: FDA-CTU
  Company Number: None

PATIENT
  Age: 69 Year
  Sex: Female
  Weight: 77.11 kg

DRUGS (1)
  1. OTEZLA [Suspect]
     Active Substance: APREMILAST
     Indication: Psoriasis
     Dosage: 30 MG TWICE A DAY ORAL ?
     Route: 048
     Dates: start: 20250422

REACTIONS (6)
  - Pruritus [None]
  - Urticaria [None]
  - Insomnia [None]
  - Lethargy [None]
  - Drug ineffective [None]
  - Application site pain [None]

NARRATIVE: CASE EVENT DATE: 20250610
